FAERS Safety Report 24888012 (Version 2)
Quarter: 2025Q3

REPORT INFORMATION
  Report Type: Spontaneous
  Country: EU (occurrence: EU)
  Receive Date: 20250127
  Receipt Date: 20250802
  Transmission Date: 20251021
  Serious: Yes (Other)
  Sender: ALEXION PHARMACEUTICALS
  Company Number: EU-DCGMA-25204558

PATIENT
  Sex: Male
  Weight: 84 kg

DRUGS (1)
  1. ROSUVASTATIN [Suspect]
     Active Substance: ROSUVASTATIN
     Indication: Hypercholesterolaemia

REACTIONS (2)
  - Myopathy [Recovered/Resolved]
  - Immobile [Recovered/Resolved]
